FAERS Safety Report 9203806 (Version 1)
Quarter: 2013Q1

REPORT INFORMATION
  Report Type: Spontaneous
  Country: GB (occurrence: None)
  Receive Date: 20130329
  Receipt Date: 20130329
  Transmission Date: 20140127
  Serious: Yes (Other)
  Sender: FDA-Public Use
  Company Number: AUR-APL-2011-04719

PATIENT
  Sex: Female

DRUGS (1)
  1. FLUOXETINE [Suspect]
     Indication: DEPRESSION
     Dates: start: 20101101, end: 20101214

REACTIONS (3)
  - Alanine aminotransferase increased [None]
  - Gamma-glutamyltransferase increased [None]
  - Hyponatraemia [None]
